FAERS Safety Report 9174919 (Version 5)
Quarter: 2013Q3

REPORT INFORMATION
  Report Type: Spontaneous
  Country: US (occurrence: US)
  Receive Date: 20130320
  Receipt Date: 20130904
  Transmission Date: 20140515
  Serious: Yes (Hospitalization)
  Sender: FDA-Public Use
  Company Number: US-GLAXOSMITHKLINE-A0874767A

PATIENT
  Age: 29 Year
  Sex: Female
  Weight: 89.4 kg

DRUGS (5)
  1. FLOLAN [Suspect]
     Indication: PULMONARY ARTERIAL HYPERTENSION
     Dosage: 16.9NGKM CONTINUOUS
     Route: 042
     Dates: start: 20100619
  2. OXYCODONE [Concomitant]
     Dosage: 5MG AS REQUIRED
     Route: 048
  3. ZOFRAN [Concomitant]
     Dosage: 4MG AS REQUIRED
     Route: 048
  4. ACETAMINOPHEN [Concomitant]
     Dosage: 650MG AS REQUIRED
     Route: 048
  5. PROCHLORPERAZINE [Concomitant]
     Dosage: 10MG AS DIRECTED
     Route: 048

REACTIONS (10)
  - Vaginal haemorrhage [Unknown]
  - Rash [Unknown]
  - Central venous catheterisation [Unknown]
  - Adverse event [Unknown]
  - Epistaxis [Not Recovered/Not Resolved]
  - Nasal congestion [Not Recovered/Not Resolved]
  - Dizziness [Not Recovered/Not Resolved]
  - Skin discolouration [Unknown]
  - Dyspnoea [Not Recovered/Not Resolved]
  - Medical device complication [Unknown]
